FAERS Safety Report 7644800-3 (Version None)
Quarter: 2011Q3

REPORT INFORMATION
  Report Type: 
  Country: None (occurrence: None)
  Receive Date: 20110725
  Receipt Date: 20110707
  Transmission Date: 20111222
  Serious: Yes (Life-Threatening)
  Sender: FDA-Public Use
  Company Number: 2011MA008786

PATIENT
  Age: 51 Year
  Sex: Male

DRUGS (5)
  1. MIRTAZAPINE [Suspect]
     Indication: DEPRESSION
     Dosage: 30 MG
     Dates: start: 20040201
  2. MIRTAZAPINE [Suspect]
     Indication: DEPRESSION
     Dosage: 30 MG
     Dates: start: 20040201
  3. VENTOLIN HFA [Concomitant]
  4. MIRTAZAPINE [Suspect]
     Indication: DEPRESSION
     Dosage: 30 MG
     Dates: start: 20040201
  5. MIRTAZAPINE [Suspect]
     Indication: DEPRESSION
     Dates: start: 20040201

REACTIONS (2)
  - URTICARIA [None]
  - LOSS OF CONSCIOUSNESS [None]
